FAERS Safety Report 14968746 (Version 5)
Quarter: 2018Q4

REPORT INFORMATION
  Report Type: Spontaneous
  Country: US (occurrence: US)
  Receive Date: 20180604
  Receipt Date: 20181206
  Transmission Date: 20190204
  Serious: No
  Sender: FDA-Public Use
  Company Number: US-SUNOVION-2018SUN002272

PATIENT

DRUGS (1)
  1. LATUDA [Suspect]
     Active Substance: LURASIDONE HYDROCHLORIDE
     Indication: BIPOLAR II DISORDER
     Dosage: UNK
     Route: 048

REACTIONS (8)
  - Tremor [Unknown]
  - Headache [Unknown]
  - Withdrawal syndrome [Unknown]
  - Cough [Unknown]
  - Abnormal dreams [Unknown]
  - Hypomania [Unknown]
  - Hypersensitivity [Unknown]
  - Product dose omission [Unknown]
